FAERS Safety Report 14202313 (Version 3)
Quarter: 2018Q1

REPORT INFORMATION
  Report Type: Report from Study
  Country: US (occurrence: US)
  Receive Date: 20171117
  Receipt Date: 20180312
  Transmission Date: 20180508
  Serious: Yes (Hospitalization)
  Sender: FDA-Public Use
  Company Number: US-ACTELION-A-US2017-162532

PATIENT
  Age: 81 Year
  Sex: Female

DRUGS (1)
  1. OPSUMIT [Suspect]
     Active Substance: MACITENTAN
     Indication: PULMONARY ARTERIAL HYPERTENSION
     Dosage: UNK
     Route: 048

REACTIONS (5)
  - Malaise [Unknown]
  - Nasopharyngitis [Unknown]
  - Pneumonia [Unknown]
  - Cough [Unknown]
  - Drug dose omission [Unknown]
